FAERS Safety Report 18131225 (Version 2)
Quarter: 2020Q3

REPORT INFORMATION
  Report Type: Spontaneous
  Country: US (occurrence: US)
  Receive Date: 20200810
  Receipt Date: 20200824
  Transmission Date: 20201103
  Serious: Yes (Hospitalization, Other)
  Sender: FDA-Public Use
  Company Number: US-BAUSCH-BL-2020-022174

PATIENT
  Age: 24 Year
  Sex: Male
  Weight: 70.37 kg

DRUGS (2)
  1. XIFAXAN [Suspect]
     Active Substance: RIFAXIMIN
     Indication: PRODUCT USE IN UNAPPROVED INDICATION
     Route: 048
     Dates: start: 202008
  2. XIFAXAN [Suspect]
     Active Substance: RIFAXIMIN
     Indication: GASTROINTESTINAL BACTERIAL OVERGROWTH
     Route: 048
     Dates: start: 202004, end: 20200506

REACTIONS (10)
  - Insurance issue [Unknown]
  - Wrong technique in product usage process [Unknown]
  - Product use in unapproved indication [Unknown]
  - Pneumonia aspiration [Unknown]
  - Body temperature abnormal [Unknown]
  - Therapy interrupted [Unknown]
  - Gastrooesophageal reflux disease [Not Recovered/Not Resolved]
  - Inability to afford medication [Unknown]
  - Nausea [Unknown]
  - Product prescribing error [Unknown]

NARRATIVE: CASE EVENT DATE: 2020
